FAERS Safety Report 7461948-7 (Version None)
Quarter: 2011Q2

REPORT INFORMATION
  Report Type: 
  Country: None (occurrence: None)
  Receive Date: 20110506
  Receipt Date: 20110427
  Transmission Date: 20111010
  Serious: Yes (Hospitalization, Other)
  Sender: FDA-Public Use
  Company Number: US-ABBOTT-11P-163-0722765-00

PATIENT
  Sex: Male
  Weight: 95.34 kg

DRUGS (3)
  1. PRILOSEC [Concomitant]
     Indication: PRODUCT USED FOR UNKNOWN INDICATION
  2. HUMIRA [Suspect]
     Indication: RHEUMATOID ARTHRITIS
     Dates: start: 20050101, end: 20080101
  3. METHOTREXATE [Suspect]
     Indication: RHEUMATOID ARTHRITIS

REACTIONS (13)
  - ABDOMINAL PAIN UPPER [None]
  - GASTRIC ULCER [None]
  - HEPATIC CIRRHOSIS [None]
  - CAROTID ARTERY DISEASE [None]
  - HAEMORRHAGE [None]
  - HEPATIC LESION [None]
  - WEIGHT DECREASED [None]
  - HYPOTENSION [None]
  - LIVER FUNCTION TEST ABNORMAL [None]
  - INJECTION SITE PAIN [None]
  - VARICES OESOPHAGEAL [None]
  - ARTERIOSCLEROSIS CORONARY ARTERY [None]
  - LOCALISED INTRAABDOMINAL FLUID COLLECTION [None]
